FAERS Safety Report 8972444 (Version 1)
Quarter: 2012Q4

REPORT INFORMATION
  Report Type: Report from Study
  Country: BE (occurrence: BE)
  Receive Date: 20121218
  Receipt Date: 20121218
  Transmission Date: 20130627
  Serious: Yes (Death, Hospitalization)
  Sender: FDA-Public Use
  Company Number: BE-TEVA-376458USA

PATIENT
  Age: 52 Year
  Sex: Male
  Weight: 97 kg

DRUGS (1)
  1. TREANDA [Suspect]
     Dosage: unknown/D
     Route: 042
     Dates: start: 20101011, end: 20101012

REACTIONS (2)
  - Pancytopenia [Fatal]
  - Pyrexia [Recovered/Resolved]
